FAERS Safety Report 7788481-7 (Version None)
Quarter: 2011Q3

REPORT INFORMATION
  Report Type: 
  Country: None (occurrence: None)
  Receive Date: 20110930
  Receipt Date: 20110919
  Transmission Date: 20111222
  Serious: Yes (Other)
  Sender: FDA-Public Use
  Company Number: US-JNJFOC-20110909966

PATIENT
  Age: 3 Year
  Sex: Male
  Weight: 24.49 kg

DRUGS (2)
  1. CHILDREN'S TYLENOL SUSPENSION [Suspect]
     Indication: PYREXIA
     Dosage: TWICE TOTAL
     Route: 048
     Dates: start: 20110918, end: 20110919
  2. CHILDREN'S TYLENOL SUSPENSION [Suspect]
     Route: 048

REACTIONS (2)
  - VOMITING [None]
  - CONVULSION [None]
